FAERS Safety Report 7875664-0 (Version None)
Quarter: 2011Q4

REPORT INFORMATION
  Report Type: 
  Country: None (occurrence: None)
  Receive Date: 20111031
  Receipt Date: 20111020
  Transmission Date: 20120403
  Serious: Yes (Hospitalization)
  Sender: FDA-Public Use
  Company Number: US-JNJFOC-20110809693

PATIENT
  Sex: Male
  Weight: 40 kg

DRUGS (5)
  1. PAMINE [Concomitant]
  2. INFLIXIMAB, RECOMBINANT [Suspect]
     Indication: CROHN'S DISEASE
     Route: 042
     Dates: start: 20101117
  3. FERROUS SULFATE TAB [Concomitant]
  4. PREDNISONE [Concomitant]
  5. PREVACID [Concomitant]

REACTIONS (1)
  - CROHN'S DISEASE [None]
